FAERS Safety Report 9790109 (Version 1)
Quarter: 2013Q4

REPORT INFORMATION
  Report Type: Spontaneous
  Country: US (occurrence: US)
  Receive Date: 20131231
  Receipt Date: 20131231
  Transmission Date: 20140711
  Serious: No
  Sender: FDA-Public Use
  Company Number: US-PFIZER INC-2013369360

PATIENT
  Sex: Male

DRUGS (4)
  1. METOPROLOL TARTRATE [Suspect]
     Dosage: UNK
  2. PAROXETINE [Interacting]
     Dosage: UNK
  3. VIAGRA [Interacting]
     Dosage: UNK
  4. SYNTHROID [Interacting]
     Dosage: UNK

REACTIONS (2)
  - Drug interaction [Unknown]
  - Drug ineffective [Unknown]
